FAERS Safety Report 23178364 (Version 1)
Quarter: 2023Q4

REPORT INFORMATION
  Report Type: Spontaneous
  Country: US (occurrence: None)
  Receive Date: 20231110
  Receipt Date: 20231110
  Transmission Date: 20240109
  Serious: Yes (Hospitalization)
  Sender: FDA-Public Use
  Company Number: None

PATIENT
  Age: 49 Year
  Sex: Male
  Weight: 102.6 kg

DRUGS (1)
  1. OZEMPIC [Suspect]
     Active Substance: SEMAGLUTIDE
     Indication: Type 2 diabetes mellitus
     Dosage: FREQUENCY : WEEKLY;?
     Route: 058
     Dates: start: 20230907, end: 20231107

REACTIONS (9)
  - Hypersensitivity [None]
  - Rash [None]
  - Lip swelling [None]
  - Swelling face [None]
  - Fatigue [None]
  - Urticaria [None]
  - Skin lesion [None]
  - Dizziness [None]
  - Dysphonia [None]

NARRATIVE: CASE EVENT DATE: 20231107
